FAERS Safety Report 4975861-8 (Version None)
Quarter: 2006Q2

REPORT INFORMATION
  Report Type: 
  Country: None (occurrence: None)
  Receive Date: 20060411
  Receipt Date: 20060404
  Transmission Date: 20061013
  Serious: Yes (Death)
  Sender: FDA-Public Use
  Company Number: HQWYE537927JAN06

PATIENT
  Age: 18 Year
  Sex: Male
  Weight: 95.34 kg

DRUGS (14)
  1. EFFEXOR XR [Suspect]
     Indication: DEPRESSION
     Dosage: 150 MG 1X PER 1 DAY, ORAL
     Route: 048
     Dates: end: 20051108
  2. ASCORBIC ACID [Concomitant]
  3. CEFTAZIDIME (CEFTAZIDIME) [Concomitant]
  4. DIFLUCAN [Concomitant]
  5. PREVACID [Concomitant]
  6. MEGACE [Concomitant]
  7. HEPARIN [Concomitant]
  8. FLAGYL [Concomitant]
  9. MULTIVITAMINS (ASCORBIC ACID/ERGOCALCIFEROL/FOLIC ACID/NICOTINAMIDE/PA [Concomitant]
  10. VANCOMYCIN [Concomitant]
  11. MAGNESIUM OXIDE (MAGNESIUM OXIDE) [Concomitant]
  12. POTASSIUM CHLORIDE [Concomitant]
  13. FERROUS SULFATE TAB [Concomitant]
  14. ERYTHROPOIETIN (ERYTHROPOIETIN) [Concomitant]

REACTIONS (2)
  - DRUG TOXICITY [None]
  - NEPHROLITHIASIS [None]
